FAERS Safety Report 9416424 (Version 1)
Quarter: 2013Q3

REPORT INFORMATION
  Report Type: Spontaneous
  Country: US (occurrence: US)
  Receive Date: 20130724
  Receipt Date: 20130724
  Transmission Date: 20140515
  Serious: No
  Sender: FDA-Public Use
  Company Number: US-PFIZER INC-2013213241

PATIENT
  Age: 12 Week
  Sex: Male
  Weight: 6.08 kg

DRUGS (1)
  1. ADVIL [Suspect]
     Dosage: UNK
     Route: 063

REACTIONS (2)
  - Exposure during breast feeding [Unknown]
  - Hypersomnia [Unknown]
